FAERS Safety Report 5282890-6 (Version None)
Quarter: 2007Q2

REPORT INFORMATION
  Report Type: 
  Country: None (occurrence: None)
  Receive Date: 20070402
  Receipt Date: 20070319
  Transmission Date: 20071010
  Serious: Yes (Other)
  Sender: FDA-Public Use
  Company Number: PHBS2007JP03204

PATIENT
  Age: 69 Year
  Sex: Female
  Weight: 37 kg

DRUGS (8)
  1. ADALAT [Concomitant]
     Indication: HYPERTENSION
     Dosage: 20 MG, QD
     Route: 048
     Dates: start: 20061102
  2. ROCALTROL [Concomitant]
     Indication: HYPERPARATHYROIDISM SECONDARY
     Dosage: 0.25 UG, UNK
  3. TICLOPIDINE HCL [Concomitant]
     Indication: CEREBRAL ISCHAEMIA
     Dosage: 100 MG, UNK
     Route: 048
  4. GASTER D [Concomitant]
     Indication: GASTRIC ULCER
     Dosage: 20 MG/DAY
     Route: 048
  5. CARDENALIN [Concomitant]
     Indication: HYPERTENSION
     Dosage: 4 MG, UNK
     Route: 048
     Dates: start: 20051015
  6. TANKARU [Concomitant]
     Indication: HYPERPHOSPHATAEMIA
     Dosage: 1500 MG, UNK
     Route: 048
     Dates: start: 20060128
  7. DIOVAN [Suspect]
     Indication: HYPERTENSION
     Dosage: 160 MG, QD
     Route: 048
     Dates: start: 20041118, end: 20070217
  8. HEPARIN SODIUM [Suspect]
     Dosage: UNK, UNK
     Route: 042
     Dates: end: 20070215

REACTIONS (2)
  - EOSINOPHILIA [None]
  - LEUKOCYTOSIS [None]
